FAERS Safety Report 22973993 (Version 4)
Quarter: 2023Q4

REPORT INFORMATION
  Report Type: Spontaneous
  Country: US (occurrence: US)
  Receive Date: 20230922
  Receipt Date: 20231003
  Transmission Date: 20240109
  Serious: No
  Sender: FDA-Public Use
  Company Number: US-002147023-NVSC2023US204036

PATIENT
  Sex: Female

DRUGS (1)
  1. VOTRIENT [Suspect]
     Active Substance: PAZOPANIB HYDROCHLORIDE
     Indication: Metastases to adrenals
     Dosage: 800 MG, QD
     Route: 048
     Dates: start: 202308

REACTIONS (3)
  - Somnolence [Unknown]
  - Fatigue [Unknown]
  - Off label use [Unknown]
